FAERS Safety Report 15352014 (Version 2)
Quarter: 2018Q4

REPORT INFORMATION
  Report Type: Spontaneous
  Country: ZA (occurrence: ZA)
  Receive Date: 20180905
  Receipt Date: 20180919
  Transmission Date: 20190204
  Serious: Yes (Hospitalization, Other)
  Sender: FDA-Public Use
  Company Number: ZA-PFIZER INC-2018354056

PATIENT
  Age: 85 Year
  Sex: Male

DRUGS (4)
  1. FINCAR [Suspect]
     Active Substance: FINASTERIDE
     Dosage: 5 MG, UNK
  2. NORVASC [Suspect]
     Active Substance: AMLODIPINE BESYLATE
     Dosage: 5 MG, UNK
  3. COZAAR COMP [Suspect]
     Active Substance: HYDROCHLOROTHIAZIDE\LOSARTAN POTASSIUM
     Dosage: 50/12.5 MG, UNK
  4. ARIMENTIA [Suspect]
     Active Substance: DONEPEZIL HYDROCHLORIDE
     Dosage: 10 MG, UNK

REACTIONS (1)
  - Dementia [Unknown]
